FAERS Safety Report 24579166 (Version 1)
Quarter: 2024Q4

REPORT INFORMATION
  Report Type: Report from Study
  Country: PL (occurrence: PL)
  Receive Date: 20241105
  Receipt Date: 20241105
  Transmission Date: 20250114
  Serious: Yes (Death, Other)
  Sender: ACCORD
  Company Number: PL-EMA-20170922-deepakevhpdd-091731565

PATIENT
  Age: 67 Year
  Sex: Male

DRUGS (4)
  1. MYCOPHENOLATE MOFETIL [Suspect]
     Active Substance: MYCOPHENOLATE MOFETIL
     Indication: Immunosuppressant drug therapy
  2. MYCOPHENOLIC ACID [Suspect]
     Active Substance: MYCOPHENOLIC ACID
     Indication: Renal transplant
  3. CYCLOSPORINE [Suspect]
     Active Substance: CYCLOSPORINE
     Indication: Renal transplant
  4. PREDNISONE [Suspect]
     Active Substance: PREDNISONE
     Indication: Renal transplant

REACTIONS (3)
  - Kidney transplant rejection [Fatal]
  - Basal cell carcinoma [Fatal]
  - Squamous cell carcinoma [Fatal]
